FAERS Safety Report 9405706 (Version 2)
Quarter: 2013Q3

REPORT INFORMATION
  Report Type: Spontaneous
  Country: CN (occurrence: CN)
  Receive Date: 20130717
  Receipt Date: 20130807
  Transmission Date: 20140515
  Serious: No
  Sender: FDA-Public Use
  Company Number: CN-009507513-1307CHN006939

PATIENT
  Sex: 0

DRUGS (1)
  1. SINGULAIR (LOCAL DIST) [Suspect]
     Route: 048

REACTIONS (2)
  - Dysphoria [Unknown]
  - Anxiety [Unknown]
